FAERS Safety Report 14657674 (Version 1)
Quarter: 2018Q1

REPORT INFORMATION
  Report Type: Spontaneous
  Country: US (occurrence: US)
  Receive Date: 20180320
  Receipt Date: 20180320
  Transmission Date: 20180509
  Serious: Yes (Life-Threatening, Hospitalization, Other)
  Sender: FDA-Public Use
  Company Number: US-ALEMBIC PHARMACUETICALS LIMITED-2018SCAL000173

PATIENT

DRUGS (1)
  1. DOXYCYCLINE. [Suspect]
     Active Substance: DOXYCYCLINE
     Indication: GENITOURINARY TRACT INFECTION
     Dosage: UNK

REACTIONS (7)
  - Liver transplant [Unknown]
  - Jaundice [Unknown]
  - Acute hepatic failure [Unknown]
  - Fatigue [Unknown]
  - Malaise [Unknown]
  - Drug-induced liver injury [Unknown]
  - Hepatic necrosis [Unknown]
